FAERS Safety Report 23105722 (Version 1)
Quarter: 2023Q4

REPORT INFORMATION
  Report Type: Spontaneous
  Country: US (occurrence: None)
  Receive Date: 20231023
  Receipt Date: 20231023
  Transmission Date: 20240110
  Serious: Yes (unspecified)
  Sender: FDA-Public Use
  Company Number: None

PATIENT
  Age: 62 Year
  Sex: Female

DRUGS (2)
  1. DIFLUPREDNATE [Suspect]
     Active Substance: DIFLUPREDNATE
     Indication: Corneal transplant
     Dosage: FREQUENCY : TWICE A DAY;?
     Dates: start: 202212
  2. PREDNISOLONE ACETATE [Concomitant]
     Active Substance: PREDNISOLONE ACETATE
     Dosage: OTHER FREQUENCY : 8 TIMES;?
     Dates: start: 202303, end: 202304

REACTIONS (2)
  - Corneal transplant [None]
  - Transplant failure [None]

NARRATIVE: CASE EVENT DATE: 20231009
